FAERS Safety Report 8288106-0 (Version None)
Quarter: 2012Q2

REPORT INFORMATION
  Report Type: 
  Country: None (occurrence: None)
  Receive Date: 20120411
  Receipt Date: 20120404
  Transmission Date: 20120825
  Serious: Yes (Hospitalization, Other)
  Sender: FDA-Public Use
  Company Number: ADR-2012-00673

PATIENT
  Sex: Male

DRUGS (2)
  1. LIORESAL [Suspect]
     Indication: BRAIN INJURY
     Dosage: 180MCG/DAY
  2. LIORESAL [Suspect]
     Indication: MUSCLE SPASTICITY
     Dosage: 180MCG/DAY

REACTIONS (5)
  - CONVULSION [None]
  - HYPOTENSION [None]
  - TOXIC ENCEPHALOPATHY [None]
  - BRADYCARDIA [None]
  - INCORRECT DOSE ADMINISTERED BY DEVICE [None]
